FAERS Safety Report 19287866 (Version 1)
Quarter: 2021Q2

REPORT INFORMATION
  Report Type: Spontaneous
  Country: ES (occurrence: ES)
  Receive Date: 20210521
  Receipt Date: 20210521
  Transmission Date: 20210717
  Serious: Yes (Other)
  Sender: FDA-Public Use
  Company Number: ES-JNJFOC-20210525124

PATIENT
  Age: 56 Year
  Sex: Male

DRUGS (1)
  1. DARZALEX [Suspect]
     Active Substance: DARATUMUMAB
     Indication: MONOCLONAL IMMUNOGLOBULIN PRESENT
     Route: 065

REACTIONS (3)
  - Product use in unapproved indication [Unknown]
  - Aplasia pure red cell [Unknown]
  - Off label use [Unknown]
